FAERS Safety Report 20880364 (Version 1)
Quarter: 2022Q2

REPORT INFORMATION
  Report Type: Spontaneous
  Country: GB (occurrence: GB)
  Receive Date: 20220526
  Receipt Date: 20220526
  Transmission Date: 20220721
  Serious: Yes (Hospitalization, Other)
  Sender: FDA-Public Use
  Company Number: GB-MHRA-MED-202205201420316320-JMQRI

PATIENT
  Sex: Female

DRUGS (1)
  1. OXALIPLATIN [Suspect]
     Active Substance: OXALIPLATIN
     Dosage: UNK

REACTIONS (4)
  - Cold sweat [Recovered/Resolved]
  - Vision blurred [Recovered/Resolved]
  - Hyperhidrosis [Recovered/Resolved]
  - Blood pressure increased [Recovered/Resolved]
